FAERS Safety Report 4367843-4 (Version None)
Quarter: 2004Q2

REPORT INFORMATION
  Report Type: 
  Country: None (occurrence: None)
  Receive Date: 20040601
  Receipt Date: 20040601
  Transmission Date: 20050107
  Serious: Yes (Hospitalization)
  Sender: FDA-Public Use
  Company Number: None

PATIENT
  Sex: Female
  Weight: 98.4306 kg

DRUGS (7)
  1. PIOGLITAZONE [Suspect]
     Indication: GLUCOSE TOLERANCE IMPAIRED
     Dosage: 45 MG/DAY
  2. PLACEBO [Suspect]
     Indication: GASTROOESOPHAGEAL REFLUX DISEASE
  3. NAPROXEN [Concomitant]
  4. SERTRALINE [Concomitant]
  5. ACYCLOVIR [Concomitant]
  6. RANITIDINE [Concomitant]
  7. ASPIRIN [Concomitant]

REACTIONS (3)
  - ABDOMINAL ADHESIONS [None]
  - ABDOMINAL HERNIA [None]
  - SMALL INTESTINAL OBSTRUCTION [None]
